FAERS Safety Report 5893879-8 (Version None)
Quarter: 2008Q3

REPORT INFORMATION
  Report Type: 
  Country: None (occurrence: None)
  Receive Date: 20080923
  Receipt Date: 20080103
  Transmission Date: 20090109
  Serious: No
  Sender: FDA-Public Use
  Company Number: US-ASTRAZENECA-2007UW27118

PATIENT
  Age: 53 Year
  Sex: Female
  Weight: 92.5 kg

DRUGS (5)
  1. SEROQUEL [Suspect]
     Indication: BIPOLAR II DISORDER
     Route: 048
  2. SEROQUEL [Suspect]
     Route: 048
     Dates: start: 20071101
  3. ARMOUR THYROID [Concomitant]
  4. RESTORIL [Concomitant]
  5. LEXAPRO [Concomitant]

REACTIONS (3)
  - AGITATION [None]
  - FEELING ABNORMAL [None]
  - INSOMNIA [None]
